FAERS Safety Report 9801663 (Version 2)
Quarter: 2014Q1

REPORT INFORMATION
  Report Type: Spontaneous
  Country: AT (occurrence: AT)
  Receive Date: 20140107
  Receipt Date: 20140110
  Transmission Date: 20141002
  Serious: Yes (Hospitalization)
  Sender: FDA-Public Use
  Company Number: PHHY2013AT154688

PATIENT
  Age: 20 Year
  Sex: Female
  Weight: 48 kg

DRUGS (2)
  1. CLAVAMOX [Suspect]
     Indication: OROPHARYNGEAL PAIN
     Dosage: 1 G, BID
     Route: 048
     Dates: start: 20130312, end: 20130315
  2. MIDANE [Concomitant]
     Dosage: 1 DF, QD
     Route: 048

REACTIONS (2)
  - Epstein-Barr virus infection [Recovered/Resolved]
  - Drug eruption [Recovered/Resolved]
